FAERS Safety Report 8994996 (Version 2)
Quarter: 2012Q4

REPORT INFORMATION
  Report Type: Spontaneous
  Country: US (occurrence: None)
  Receive Date: 20120830
  Receipt Date: 20120831
  Transmission Date: 20130627
  Serious: Yes (Life-Threatening, Hospitalization, Other)
  Sender: FDA-Public Use
  Company Number: ADR-2009-7411

PATIENT
  Sex: Male

DRUGS (3)
  1. LIORESAL INTRATHECAL (BACLOFEN INJECTION) [Suspect]
     Indication: SPASTICITY
  2. LIORESAL INTRATHECAL (BACLOFEN INJECTION) [Suspect]
     Indication: HEAD INJURY
  3. LIORESAL INTRATHECAL (BACLOFEN INJECTION) [Suspect]
     Indication: BRAIN INJURY

REACTIONS (4)
  - Drug withdrawal syndrome [None]
  - Bradycardia [None]
  - Cardiac arrest [None]
  - Gait disturbance [None]
